FAERS Safety Report 8270694-1 (Version None)
Quarter: 2012Q2

REPORT INFORMATION
  Report Type: 
  Country: None (occurrence: None)
  Receive Date: 20120410
  Receipt Date: 20120330
  Transmission Date: 20120825
  Serious: Yes (Hospitalization)
  Sender: FDA-Public Use
  Company Number: JP-ELI_LILLY_AND_COMPANY-JP201203009082

PATIENT
  Age: 73 Year
  Sex: Female

DRUGS (2)
  1. GEMZAR [Suspect]
     Indication: BILE DUCT CANCER
     Dosage: 1000 MG/M2, UNK
     Route: 042
     Dates: start: 20120319
  2. CISPLATIN [Concomitant]
     Indication: BILE DUCT CANCER
     Dosage: UNK
     Route: 042
     Dates: start: 20120319

REACTIONS (2)
  - COLITIS [None]
  - CONSTIPATION [None]
